FAERS Safety Report 14173432 (Version 1)
Quarter: 2017Q4

REPORT INFORMATION
  Report Type: Spontaneous
  Country: US (occurrence: US)
  Receive Date: 20171109
  Receipt Date: 20171109
  Transmission Date: 20180321
  Serious: Yes (Other)
  Sender: FDA-Public Use
  Company Number: None

PATIENT
  Age: 53 Year
  Sex: Female

DRUGS (11)
  1. LEUCOVORIN CA [Concomitant]
  2. TIZANIDINE. [Concomitant]
     Active Substance: TIZANIDINE
  3. FERROUS SULFATE. [Concomitant]
     Active Substance: FERROUS SULFATE
  4. FOLIC ACID. [Concomitant]
     Active Substance: FOLIC ACID
  5. DULOXETINE. [Concomitant]
     Active Substance: DULOXETINE
  6. ATENOLOL. [Concomitant]
     Active Substance: ATENOLOL
  7. HYDROXYCHLOROQUINE [Concomitant]
     Active Substance: HYDROXYCHLOROQUINE
  8. OXYCODONE [Concomitant]
     Active Substance: OXYCODONE
  9. VENTOLIN HFA [Concomitant]
     Active Substance: ALBUTEROL SULFATE
  10. ORENCIA [Suspect]
     Active Substance: ABATACEPT
     Indication: RHEUMATOID ARTHRITIS
     Dosage: ?          OTHER FREQUENCY:WEEKLY;?
     Route: 058
     Dates: start: 20160721
  11. METHOTREXATE. [Concomitant]
     Active Substance: METHOTREXATE

REACTIONS (4)
  - Vomiting [None]
  - Weight decreased [None]
  - Nausea [None]
  - Hepatic enzyme increased [None]

NARRATIVE: CASE EVENT DATE: 20171107
